FAERS Safety Report 17483402 (Version 4)
Quarter: 2020Q2

REPORT INFORMATION
  Report Type: Spontaneous
  Country: US (occurrence: US)
  Receive Date: 20200302
  Receipt Date: 20200414
  Transmission Date: 20200713
  Serious: No
  Sender: FDA-Public Use
  Company Number: US-VERTEX PHARMACEUTICALS-2020-003613

PATIENT
  Age: 18 Year
  Sex: Female
  Weight: 45 kg

DRUGS (4)
  1. SCANDISHAKE MIX [Concomitant]
     Active Substance: DIETARY SUPPLEMENT
     Dosage: UNK
  2. BETHKIS [Concomitant]
     Active Substance: TOBRAMYCIN
     Dosage: UNK
  3. TRIKAFTA [Suspect]
     Active Substance: ELEXACAFTOR\IVACAFTOR\TEZACAFTOR
     Indication: CYSTIC FIBROSIS
     Dosage: 100MG ELEXACAFTOR/ 50 MG TEZACAFTOR/ 75 MG IVACAFTOR; 150 MG IVACAFTOR, FREQ UNK
     Route: 048
     Dates: start: 20191210
  4. CREON [Concomitant]
     Active Substance: PANCRELIPASE AMYLASE\PANCRELIPASE LIPASE\PANCRELIPASE PROTEASE
     Dosage: UNK

REACTIONS (2)
  - Asthma [Recovered/Resolved]
  - Hyperaesthesia [Not Recovered/Not Resolved]

NARRATIVE: CASE EVENT DATE: 202002
